FAERS Safety Report 8946304 (Version 1)
Quarter: 2012Q4

REPORT INFORMATION
  Report Type: 
  Country: US (occurrence: US)
  Receive Date: 20121204
  Receipt Date: 20121204
  Transmission Date: 20130627
  Serious: No
  Sender: FDA-Public Use
  Company Number: US-AMGEN-USASP2012075636

PATIENT
  Age: 69 Year
  Sex: Male

DRUGS (2)
  1. ENBREL [Suspect]
     Indication: PSORIATIC ARTHROPATHY
     Dosage: 50mg weekly
     Dates: start: 20120913
  2. METHOTREXATE [Concomitant]
     Dosage: 25 mg, weekly

REACTIONS (2)
  - Arthralgia [Not Recovered/Not Resolved]
  - Drug effect incomplete [Not Recovered/Not Resolved]
